FAERS Safety Report 9711235 (Version 2)
Quarter: 2013Q4

REPORT INFORMATION
  Report Type: Spontaneous
  Country: US (occurrence: US)
  Receive Date: 20131126
  Receipt Date: 20131126
  Transmission Date: 20140711
  Serious: No
  Sender: FDA-Public Use
  Company Number: US-BRISTOL-MYERS SQUIBB COMPANY-18747477

PATIENT
  Age: 57 Year
  Sex: Female

DRUGS (2)
  1. BYDUREON [Suspect]
     Indication: BLOOD GLUCOSE ABNORMAL
     Route: 058
     Dates: start: 20120512
  2. METFORMIN [Concomitant]
     Dates: start: 20121205

REACTIONS (2)
  - Injection site reaction [Unknown]
  - Injection site pruritus [Unknown]
